FAERS Safety Report 21512606 (Version 3)
Quarter: 2022Q4

REPORT INFORMATION
  Report Type: Report from Study
  Country: CN (occurrence: CN)
  Receive Date: 20221027
  Receipt Date: 20221207
  Transmission Date: 20230112
  Serious: Yes (Hospitalization, Other)
  Sender: FDA-Public Use
  Company Number: CN-BRISTOL-MYERS SQUIBB COMPANY-2022-124554

PATIENT
  Age: 59 Year
  Sex: Male
  Weight: 78 kg

DRUGS (8)
  1. PLACEBO [Suspect]
     Active Substance: UNSPECIFIED INGREDIENT
     Indication: Non-small cell lung cancer
     Dosage: DOSE DELAYED.?ON 20-OCT-2022, STUDY THERAPY WITH NIVOLUMAB WAS RESUMED.?ON 01-DEC-2022, THE PATIENT
     Route: 042
     Dates: start: 20220928
  2. CARBOPLATIN [Suspect]
     Active Substance: CARBOPLATIN
     Indication: Non-small cell lung cancer
     Dosage: DOSE DELAYED.?ON 20-OCT-2022, STUDY THERAPY WITH CARBOPLATIN WAS RESUMED.?ON 01-DEC-2022, THE PATIEN
     Route: 042
     Dates: start: 20220928
  3. CARBOPLATIN [Suspect]
     Active Substance: CARBOPLATIN
     Route: 042
     Dates: start: 20221020
  4. CARBOPLATIN [Suspect]
     Active Substance: CARBOPLATIN
     Route: 042
     Dates: start: 20221109
  5. CARBOPLATIN [Suspect]
     Active Substance: CARBOPLATIN
     Route: 042
     Dates: start: 20221201, end: 20221201
  6. PEMETREXED DISODIUM [Suspect]
     Active Substance: PEMETREXED DISODIUM
     Indication: Non-small cell lung cancer
     Dosage: DOSE DELAYED?ON 20-OCT-2022, STUDY THERAPY WITH PEMETREXED WAS RESUMED.?ON 01-DEC-2022, THE PATIENT
     Route: 042
     Dates: start: 20220928
  7. PEMETREXED DISODIUM [Suspect]
     Active Substance: PEMETREXED DISODIUM
     Route: 042
     Dates: start: 20221109
  8. PEMETREXED DISODIUM [Suspect]
     Active Substance: PEMETREXED DISODIUM
     Route: 042
     Dates: start: 20221201, end: 20221201

REACTIONS (2)
  - Leukopenia [Recovered/Resolved]
  - Neutrophil count decreased [Recovered/Resolved]

NARRATIVE: CASE EVENT DATE: 20221018
